FAERS Safety Report 6714929-2 (Version None)
Quarter: 2010Q2

REPORT INFORMATION
  Report Type: 
  Country: None (occurrence: None)
  Receive Date: 20100507
  Receipt Date: 20100326
  Transmission Date: 20101027
  Serious: Yes (Hospitalization, Other)
  Sender: FDA-Public Use
  Company Number: US-BAYER-200943217NA

PATIENT
  Age: 40 Year
  Sex: Female
  Weight: 82 kg

DRUGS (8)
  1. YAZ [Suspect]
     Indication: PREMENSTRUAL SYNDROME
     Dosage: 1 DF
     Route: 048
     Dates: start: 20051001, end: 20090915
  2. SYNTHROID [Concomitant]
     Dates: start: 20070622
  3. SPIRONOLACTONE [Concomitant]
     Dates: start: 20071030
  4. NAPROXEN [Concomitant]
     Dates: start: 20071003
  5. TRAMADOL [Concomitant]
     Dates: start: 20071016
  6. NEXIUM [Concomitant]
     Indication: DYSPEPSIA
     Dates: start: 20071217
  7. KETOROLAC TROMETHAMINE [Concomitant]
     Indication: DRUG USE FOR UNKNOWN INDICATION
     Dates: start: 20080126
  8. CELEBREX [Concomitant]
     Indication: DRUG USE FOR UNKNOWN INDICATION
     Dates: start: 20090206

REACTIONS (11)
  - ABDOMINAL PAIN [None]
  - CHOLELITHIASIS [None]
  - DYSKINESIA [None]
  - HYPOAESTHESIA [None]
  - HYPOTONIA [None]
  - MUSCLE SPASMS [None]
  - SCOTOMA [None]
  - TRANSIENT ISCHAEMIC ATTACK [None]
  - VERTIGO [None]
  - VISUAL IMPAIRMENT [None]
  - VOMITING [None]
